FAERS Safety Report 9668097 (Version 2)
Quarter: 2014Q4

REPORT INFORMATION
  Report Type: Report from Study
  Country: VE (occurrence: VE)
  Receive Date: 20131104
  Receipt Date: 20141028
  Transmission Date: 20150529
  Serious: Yes (Death, Other)
  Sender: FDA-Public Use
  Company Number: VE-ABBVIE-13P-178-1165552-00

PATIENT
  Sex: Female

DRUGS (1)
  1. ZEMPLAR [Suspect]
     Active Substance: PARICALCITOL
     Indication: RENAL FAILURE
     Dosage: 1.5 ML
     Route: 042
     Dates: start: 201211, end: 201308

REACTIONS (4)
  - Infarction [Fatal]
  - Hypertensive cardiomyopathy [Unknown]
  - Gastrointestinal haemorrhage [Unknown]
  - Angiosclerosis [Unknown]
